FAERS Safety Report 6127693-5 (Version None)
Quarter: 2009Q1

REPORT INFORMATION
  Report Type: 
  Country: None (occurrence: None)
  Receive Date: 20090323
  Receipt Date: 20090312
  Transmission Date: 20090719
  Serious: Yes (Other)
  Sender: FDA-Public Use
  Company Number: US-JNJFOC-20090304053

PATIENT
  Sex: Female

DRUGS (3)
  1. TYLENOL WARMING COUGH + SORE THROAT NIGHTTIME HONEY LEMON [Suspect]
     Indication: COUGH
  2. TYLENOL WARMING COUGH + SORE THROAT NIGHTTIME HONEY LEMON [Suspect]
     Indication: INFLUENZA
  3. TYLENOL WARMING COUGH + SORE THROAT NIGHTTIME HONEY LEMON [Suspect]
     Indication: NASOPHARYNGITIS

REACTIONS (1)
  - HAEMATOCHEZIA [None]
